FAERS Safety Report 19651080 (Version 1)
Quarter: 2021Q3

REPORT INFORMATION
  Report Type: Spontaneous
  Country: US (occurrence: US)
  Receive Date: 20210803
  Receipt Date: 20210803
  Transmission Date: 20211014
  Serious: Yes (Hospitalization)
  Sender: FDA-Public Use
  Company Number: None

PATIENT
  Sex: Female

DRUGS (6)
  1. DIMETHYL FUMARATE [Suspect]
     Active Substance: DIMETHYL FUMARATE
     Indication: MULTIPLE SCLEROSIS
     Route: 048
     Dates: start: 20210205
  2. GABAPENTIN. [Concomitant]
     Active Substance: GABAPENTIN
  3. ELAVIL [Concomitant]
     Active Substance: AMITRIPTYLINE HYDROCHLORIDE
  4. SEROQUEL [Concomitant]
     Active Substance: QUETIAPINE FUMARATE
  5. SILODOSIN. [Concomitant]
     Active Substance: SILODOSIN
  6. ROBAXIN [Concomitant]
     Active Substance: METHOCARBAMOL

REACTIONS (3)
  - Major depression [None]
  - Fall [None]
  - Rib fracture [None]
